FAERS Safety Report 11371019 (Version 1)
Quarter: 2015Q3

REPORT INFORMATION
  Report Type: Spontaneous
  Country: US (occurrence: US)
  Receive Date: 20150812
  Receipt Date: 20150812
  Transmission Date: 20151125
  Serious: No
  Sender: FDA-Public Use
  Company Number: US-GILEAD-2015-0167148

PATIENT
  Age: 71 Year
  Sex: Female

DRUGS (4)
  1. ZYDELIG [Suspect]
     Active Substance: IDELALISIB
     Dosage: 1 DF, Q1WK
  2. ZYDELIG [Suspect]
     Active Substance: IDELALISIB
     Dosage: 2 UNK, UNK
  3. ZYDELIG [Suspect]
     Active Substance: IDELALISIB
     Dosage: 3 UNK, UNK
  4. ZYDELIG [Suspect]
     Active Substance: IDELALISIB
     Indication: B-CELL LYMPHOMA
     Dosage: 5 DF, Q1WK
     Route: 048

REACTIONS (3)
  - Stomatitis [Unknown]
  - Liver function test abnormal [Recovered/Resolved]
  - Off label use [Not Recovered/Not Resolved]
